FAERS Safety Report 7965458-X (Version None)
Quarter: 2011Q4

REPORT INFORMATION
  Report Type: 
  Country: None (occurrence: None)
  Receive Date: 20111206
  Receipt Date: 20111206
  Transmission Date: 20120403
  Serious: Yes (Death, Hospitalization)
  Sender: FDA-Public Use
  Company Number: None

PATIENT
  Sex: Female
  Weight: 65.4 kg

DRUGS (1)
  1. BEVACIZUMAB (RHUMAB VEGF) [Suspect]
     Dosage: 1000 MG
     Dates: end: 20111117

REACTIONS (4)
  - UNRESPONSIVE TO STIMULI [None]
  - HEADACHE [None]
  - NERVOUS SYSTEM DISORDER [None]
  - HAEMORRHAGE INTRACRANIAL [None]
